FAERS Safety Report 10032952 (Version 2)
Quarter: 2014Q3

REPORT INFORMATION
  Report Type: Report from Study
  Country: US (occurrence: US)
  Receive Date: 20140324
  Receipt Date: 20140701
  Transmission Date: 20150326
  Serious: Yes (Other)
  Sender: FDA-Public Use
  Company Number: US-ALEXION-A201102249

PATIENT

DRUGS (1)
  1. SOLIRIS [Suspect]
     Active Substance: ECULIZUMAB
     Indication: PAROXYSMAL NOCTURNAL HAEMOGLOBINURIA
     Dosage: UNK
     Route: 042

REACTIONS (5)
  - Gallbladder disorder [Unknown]
  - Dyspnoea [Unknown]
  - Cardiomegaly [Unknown]
  - Myelodysplastic syndrome [Unknown]
  - Blood disorder [Unknown]

NARRATIVE: CASE EVENT DATE: 201012
